FAERS Safety Report 4325885-9 (Version None)
Quarter: 2004Q1

REPORT INFORMATION
  Report Type: 
  Country: None (occurrence: None)
  Receive Date: 20040324
  Receipt Date: 20031230
  Transmission Date: 20041129
  Serious: Yes (Hospitalization)
  Sender: FDA-Public Use
  Company Number: SOS-2003-095

PATIENT
  Age: 83 Year
  Sex: Male
  Weight: 61.2356 kg

DRUGS (4)
  1. URECHOLINE [Suspect]
     Indication: URINARY RETENTION
     Dosage: 25 MG Q6 HOURS; PO
     Route: 048
     Dates: start: 20030909, end: 20031123
  2. LOPRESSOR [Concomitant]
  3. FLOMAX [Concomitant]
  4. NORVASC [Concomitant]

REACTIONS (2)
  - BODY TEMPERATURE DECREASED [None]
  - HYPERHIDROSIS [None]
